FAERS Safety Report 25032776 (Version 4)
Quarter: 2025Q3

REPORT INFORMATION
  Report Type: Spontaneous
  Country: JP (occurrence: JP)
  Receive Date: 20250303
  Receipt Date: 20250901
  Transmission Date: 20251021
  Serious: Yes (Other)
  Sender: BRISTOL-MYERS SQUIBB COMPANY
  Company Number: JP-ONO-2025JP003452

PATIENT
  Age: 56 Year
  Sex: Female

DRUGS (3)
  1. OPDIVO [Suspect]
     Active Substance: NIVOLUMAB
     Indication: Oesophageal carcinoma
     Route: 041
  2. OPDIVO [Suspect]
     Active Substance: NIVOLUMAB
     Route: 041
  3. OPDIVO [Suspect]
     Active Substance: NIVOLUMAB
     Route: 041

REACTIONS (2)
  - Sjogren^s syndrome [Recovering/Resolving]
  - Immune-mediated hypothyroidism [Recovering/Resolving]
